FAERS Safety Report 12999015 (Version 2)
Quarter: 2017Q3

REPORT INFORMATION
  Report Type: Spontaneous
  Country: ES (occurrence: ES)
  Receive Date: 20161205
  Receipt Date: 20170809
  Transmission Date: 20171127
  Serious: No
  Sender: FDA-Public Use
  Company Number: ES-SA-2016SA218396

PATIENT
  Age: 33 Year
  Sex: Female

DRUGS (1)
  1. ARAVA [Suspect]
     Active Substance: LEFLUNOMIDE
     Indication: PSORIASIS
     Route: 048
     Dates: start: 201410

REACTIONS (1)
  - Exposure during pregnancy [Unknown]
